FAERS Safety Report 8346976-1 (Version None)
Quarter: 2012Q2

REPORT INFORMATION
  Report Type: 
  Country: None (occurrence: None)
  Receive Date: 20120509
  Receipt Date: 20120504
  Transmission Date: 20120825
  Serious: Yes (Hospitalization, Other)
  Sender: FDA-Public Use
  Company Number: US-AMGEN-USASP2012020119

PATIENT
  Age: 68 Year
  Sex: Male

DRUGS (3)
  1. ENBREL [Suspect]
     Indication: RHEUMATOID ARTHRITIS
     Dosage: 50 MG, QWK
     Dates: start: 20111222
  2. PLAQUENIL [Concomitant]
     Dosage: 1 MG, UNK
     Dates: start: 20110101
  3. TREXALL [Concomitant]
     Dosage: 1 MG, UNK
     Dates: start: 20110101

REACTIONS (5)
  - BRONCHITIS [None]
  - THROAT TIGHTNESS [None]
  - INJECTION SITE HAEMATOMA [None]
  - OXYGEN SATURATION DECREASED [None]
  - UPPER RESPIRATORY TRACT INFECTION [None]
